FAERS Safety Report 4841870-2 (Version None)
Quarter: 2005Q4

REPORT INFORMATION
  Report Type: 
  Country: None (occurrence: None)
  Receive Date: 20051130
  Receipt Date: 20050921
  Transmission Date: 20060501
  Serious: Yes (Other)
  Sender: FDA-Public Use
  Company Number: US-GLAXOSMITHKLINE-A0575221A

PATIENT
  Sex: Female

DRUGS (3)
  1. WELLBUTRIN [Suspect]
     Indication: DEPRESSION
     Route: 048
     Dates: end: 20050919
  2. THYROID TAB [Concomitant]
  3. UNSPECIFIED MEDICATION [Concomitant]

REACTIONS (8)
  - AFFECT LABILITY [None]
  - ALOPECIA [None]
  - ANOREXIA [None]
  - CONSTIPATION [None]
  - DEPRESSION [None]
  - DYSKINESIA [None]
  - HYPOTHYROIDISM [None]
  - PERIARTHRITIS [None]
